FAERS Safety Report 12048486 (Version 1)
Quarter: 2016Q1

REPORT INFORMATION
  Report Type: Spontaneous
  Country: GB (occurrence: GB)
  Receive Date: 20160208
  Receipt Date: 20160208
  Transmission Date: 20160526
  Serious: Yes (Other)
  Sender: FDA-Public Use
  Company Number: GB-ELI_LILLY_AND_COMPANY-GB201602000162

PATIENT
  Sex: Male

DRUGS (5)
  1. CRIZOTINIB [Suspect]
     Active Substance: CRIZOTINIB
     Dosage: 200 MG, UNK
     Route: 065
  2. CRIZOTINIB [Suspect]
     Active Substance: CRIZOTINIB
     Indication: PRODUCT USED FOR UNKNOWN INDICATION
     Dosage: UNK, UNKNOWN
     Route: 065
  3. CISPLATIN. [Concomitant]
     Active Substance: CISPLATIN
     Dosage: UNK, UNKNOWN
     Route: 065
  4. PEMETREXED [Suspect]
     Active Substance: PEMETREXED
     Indication: PRODUCT USED FOR UNKNOWN INDICATION
     Dosage: UNK, UNKNOWN
     Route: 065
  5. CRIZOTINIB [Suspect]
     Active Substance: CRIZOTINIB
     Dosage: 200 MG, BID
     Route: 065

REACTIONS (6)
  - Pleural effusion [Recovered/Resolved]
  - Lacunar infarction [Unknown]
  - Malignant neoplasm progression [Unknown]
  - Diverticulum intestinal [Unknown]
  - Pericardial effusion [Unknown]
  - Transaminases increased [Unknown]
